FAERS Safety Report 11481263 (Version 1)
Quarter: 2015Q3

REPORT INFORMATION
  Report Type: Spontaneous
  Country: US (occurrence: US)
  Receive Date: 20150909
  Receipt Date: 20150909
  Transmission Date: 20151125
  Serious: Yes (Other)
  Sender: FDA-Public Use
  Company Number: PHEH2015US017063

PATIENT
  Sex: Female

DRUGS (4)
  1. DIOVAN [Suspect]
     Active Substance: VALSARTAN
     Dosage: 320 MG, UNK
     Route: 065
     Dates: start: 201505
  2. KEFLEX [Suspect]
     Active Substance: CEPHALEXIN
     Indication: PRODUCT USED FOR UNKNOWN INDICATION
     Route: 065
  3. DIOVAN [Suspect]
     Active Substance: VALSARTAN
     Indication: BLOOD PRESSURE ABNORMAL
     Dosage: 120 MG, UNK
     Route: 065
     Dates: end: 201505
  4. CEPHALEXIN. [Suspect]
     Active Substance: CEPHALEXIN
     Indication: PRODUCT USED FOR UNKNOWN INDICATION
     Route: 065

REACTIONS (11)
  - White blood cell count decreased [Unknown]
  - Drug intolerance [Unknown]
  - Blood iron increased [Recovered/Resolved]
  - Arthralgia [Unknown]
  - Arthritis [Unknown]
  - Gene mutation identification test positive [Unknown]
  - Reaction to drug excipients [Unknown]
  - Hepatic steatosis [Unknown]
  - Burns second degree [Unknown]
  - Muscle injury [Unknown]
  - Blood pressure increased [Unknown]
